FAERS Safety Report 6587716-6 (Version None)
Quarter: 2010Q1

REPORT INFORMATION
  Report Type: 
  Country: None (occurrence: None)
  Receive Date: 20100218
  Receipt Date: 20091119
  Transmission Date: 20100710
  Serious: No
  Sender: FDA-Public Use
  Company Number: A0818145A

PATIENT
  Age: 73 Year
  Sex: Male

DRUGS (5)
  1. COREG CR [Suspect]
     Dosage: 10MG PER DAY
     Route: 048
     Dates: start: 20090925
  2. LASIX [Concomitant]
  3. SLEEP AID [Concomitant]
  4. ASPIRIN [Concomitant]
  5. CRESTOR [Concomitant]

REACTIONS (3)
  - BLOOD PRESSURE FLUCTUATION [None]
  - DRUG INEFFECTIVE [None]
  - PALPITATIONS [None]
